FAERS Safety Report 17452610 (Version 1)
Quarter: 2020Q1

REPORT INFORMATION
  Report Type: Spontaneous
  Country: US (occurrence: US)
  Receive Date: 20200224
  Receipt Date: 20200224
  Transmission Date: 20200409
  Serious: No
  Sender: FDA-Public Use
  Company Number: US-BIODELIVERY SCIENCES INTERNATIONAL-2019BDSI0874

PATIENT
  Sex: Female

DRUGS (2)
  1. BUPRENORPHINE. [Suspect]
     Active Substance: BUPRENORPHINE
     Route: 002
  2. BUPRENORPHINE. [Suspect]
     Active Substance: BUPRENORPHINE
     Indication: PAIN
     Route: 002

REACTIONS (2)
  - Somnolence [Unknown]
  - Therapeutic response decreased [Not Recovered/Not Resolved]
